FAERS Safety Report 5525769-4 (Version None)
Quarter: 2007Q4

REPORT INFORMATION
  Report Type: 
  Country: None (occurrence: None)
  Receive Date: 20071126
  Receipt Date: 20071120
  Transmission Date: 20080405
  Serious: Yes (Death, Hospitalization)
  Sender: FDA-Public Use
  Company Number: FR-ASTRAZENECA-2007CG01642

PATIENT
  Age: 17844 Day
  Sex: Male

DRUGS (13)
  1. MOPRAL [Suspect]
     Route: 048
     Dates: end: 20071009
  2. ARIXTRA [Suspect]
     Indication: DEEP VEIN THROMBOSIS
     Route: 058
     Dates: end: 20071006
  3. HEPARIN [Suspect]
     Dates: start: 20071006, end: 20071008
  4. ORGARAN [Suspect]
     Route: 058
     Dates: start: 20071008, end: 20071010
  5. LASIX [Suspect]
     Dates: end: 20071010
  6. MIDAZOLAM HCL [Suspect]
     Dates: end: 20071010
  7. ULTIVA [Suspect]
     Dates: end: 20071010
  8. NICARDIPINE HCL [Suspect]
     Dates: end: 20071009
  9. CLAFORAN [Suspect]
     Dates: end: 20071008
  10. ANEXATE TAB [Suspect]
     Dates: start: 20071010, end: 20071010
  11. AMIKACIN [Concomitant]
  12. TAZOCILLINE [Concomitant]
  13. CIPROFLOXACIN HCL [Concomitant]

REACTIONS (2)
  - CEREBRAL HAEMORRHAGE [None]
  - COMA [None]
